FAERS Safety Report 10261333 (Version 1)
Quarter: 2014Q2

REPORT INFORMATION
  Report Type: Spontaneous
  Country: CA (occurrence: CA)
  Receive Date: 20140626
  Receipt Date: 20140626
  Transmission Date: 20141212
  Serious: Yes (Other)
  Sender: FDA-Public Use
  Company Number: CA-AMGEN-CANSP2014046831

PATIENT
  Age: 55 Year
  Sex: Female
  Weight: 100 kg

DRUGS (1)
  1. NPLATE [Suspect]
     Indication: IMMUNE THROMBOCYTOPENIC PURPURA
     Dosage: 125 MUG, UNK
     Route: 065
     Dates: start: 20120621

REACTIONS (9)
  - Epistaxis [Unknown]
  - Faeces discoloured [Unknown]
  - Abdominal distension [Unknown]
  - Vomiting [Unknown]
  - Petechiae [Unknown]
  - Gingival bleeding [Unknown]
  - Haematoma [Unknown]
  - Purpura [Unknown]
  - Platelet count abnormal [Unknown]
